FAERS Safety Report 4496577-0 (Version None)
Quarter: 2004Q4

REPORT INFORMATION
  Report Type: 
  Country: None (occurrence: None)
  Receive Date: 20041109
  Receipt Date: 20030219
  Transmission Date: 20050328
  Serious: Yes (Hospitalization)
  Sender: FDA-Public Use
  Company Number: 200310555EU

PATIENT
  Sex: Female

DRUGS (7)
  1. ARAVA [Suspect]
     Indication: RHEUMATOID ARTHRITIS
     Route: 048
     Dates: start: 20001117, end: 20020527
  2. SINTROM [Suspect]
     Indication: PULMONARY EMBOLISM
     Route: 048
  3. CELEBREX [Concomitant]
     Indication: RHEUMATOID ARTHRITIS
     Route: 048
  4. URBASON [Concomitant]
     Indication: RHEUMATOID ARTHRITIS
     Route: 048
  5. ACFOL [Concomitant]
     Route: 048
  6. PANTOK [Concomitant]
     Indication: DYSLIPIDAEMIA
     Route: 048
  7. ENALAPRIL [Concomitant]
     Indication: HYPERTENSION
     Route: 048

REACTIONS (10)
  - CYANOSIS [None]
  - DEEP VEIN THROMBOSIS [None]
  - DYSPNOEA AT REST [None]
  - HEART SOUNDS ABNORMAL [None]
  - PITTING OEDEMA [None]
  - PULMONARY EMBOLISM [None]
  - PULMONARY HYPERTENSION [None]
  - RIGHT VENTRICULAR SYSTOLIC PRESSURE INCREASED [None]
  - TRICUSPID VALVE INCOMPETENCE [None]
  - VENTRICULAR HYPERTROPHY [None]
